FAERS Safety Report 23686067 (Version 2)
Quarter: 2024Q4

REPORT INFORMATION
  Report Type: Spontaneous
  Country: DE (occurrence: DE)
  Receive Date: 20240329
  Receipt Date: 20241030
  Transmission Date: 20250115
  Serious: Yes (Other)
  Sender: RANBAXY
  Company Number: DE-SUN PHARMACEUTICAL INDUSTRIES LTD-2024RR-439061

PATIENT
  Age: 59 Year
  Sex: Male
  Weight: 83 kg

DRUGS (6)
  1. CIPROFLOXACIN [Suspect]
     Active Substance: CIPROFLOXACIN
     Indication: Diverticulitis
     Dosage: 750 MG, BID (CIPROFLOXACIN 750 MG, TWICE DAILY, PLANNED FOR 10 DAYS (PREMATURELY STOPPED), EAR/EYE D
     Route: 048
     Dates: start: 20120112, end: 20120115
  2. CIPROFLOXACIN\CIPROFLOXACIN HYDROCHLORIDE [Suspect]
     Active Substance: CIPROFLOXACIN\CIPROFLOXACIN HYDROCHLORIDE
     Indication: Diverticulitis
     Dosage: 750 MILLIGRAM, CIPROFLOXACIN 750 MG, 2X DAILY, PLANNED FOR 10 DAYS (DISCONTINUED PREMATURELY)
     Route: 048
     Dates: start: 20120112, end: 20120115
  3. MARCUMAR [Concomitant]
     Active Substance: PHENPROCOUMON
     Indication: Adenomatous polyposis coli
     Dosage: 3 MILLIGRAM
     Route: 048
     Dates: start: 200701
  4. MARCUMAR [Concomitant]
     Active Substance: PHENPROCOUMON
     Indication: Deep vein thrombosis
  5. CYANOCOBALAMIN\FOLIC ACID\PYRIDOXINE HYDROCHLORIDE [Concomitant]
     Active Substance: CYANOCOBALAMIN\FOLIC ACID\PYRIDOXINE HYDROCHLORIDE
     Indication: Hyperhomocysteinaemia
     Dosage: 1 DOSAGE FORM
     Route: 048
     Dates: start: 200808, end: 202011
  6. OMEPRAZOLE [Concomitant]
     Active Substance: OMEPRAZOLE
     Indication: Epigastric discomfort
     Dosage: 20 MILLIGRAM
     Route: 048
     Dates: start: 200602, end: 201408

REACTIONS (14)
  - Hallucination [Recovered/Resolved]
  - Altered state of consciousness [Recovered/Resolved]
  - Polyneuropathy [Recovered/Resolved with Sequelae]
  - Anxiety disorder [Recovered/Resolved]
  - Asthenia [Recovered/Resolved with Sequelae]
  - Gait disturbance [Recovered/Resolved with Sequelae]
  - Gait disturbance [Recovered/Resolved with Sequelae]
  - Tendonitis [Recovered/Resolved]
  - Myalgia [Unknown]
  - Pain in extremity [Unknown]
  - Tendon pain [Recovered/Resolved]
  - Altered state of consciousness [Unknown]
  - Hypoaesthesia [Unknown]
  - Pain in extremity [Recovered/Resolved]

NARRATIVE: CASE EVENT DATE: 20120101
